FAERS Safety Report 8095961-6 (Version None)
Quarter: 2012Q1

REPORT INFORMATION
  Report Type: 
  Country: None (occurrence: None)
  Receive Date: 20120129
  Receipt Date: 20111215
  Transmission Date: 20120608
  Serious: No
  Sender: FDA-Public Use
  Company Number: US-ABBOTT-11P-163-0883621-00

PATIENT
  Age: 64 Year
  Sex: Male

DRUGS (8)
  1. ENTOCORT EC [Concomitant]
     Indication: CROHN'S DISEASE
  2. PREVACID [Concomitant]
     Indication: GASTROOESOPHAGEAL REFLUX DISEASE
     Dosage: 30 MG DAILY
  3. AMBIEN [Concomitant]
     Indication: INSOMNIA
     Dosage: AT BEDTIME
  4. HUMIRA [Suspect]
     Dates: start: 20100101
  5. PENTASA [Concomitant]
     Indication: CROHN'S DISEASE
     Dosage: 4 GRAMS DAILY
  6. HUMIRA [Suspect]
     Indication: CROHN'S DISEASE
     Dosage: INTERRUPTED TXMNT 1 YR AGO
     Dates: start: 20070101, end: 20100101
  7. VITAMIN B-12 [Concomitant]
     Indication: PRODUCT USED FOR UNKNOWN INDICATION
     Dosage: 1 CC PER MONTH
  8. ACETAMINOPHEN [Concomitant]
     Indication: INSOMNIA
     Dosage: AT BEDTIME

REACTIONS (6)
  - CROHN'S DISEASE [None]
  - LOSS OF CONSCIOUSNESS [None]
  - DYSPNOEA [None]
  - HERNIA [None]
  - MUSCULAR WEAKNESS [None]
  - PAIN IN EXTREMITY [None]
